FAERS Safety Report 7691671-5 (Version None)
Quarter: 2011Q3

REPORT INFORMATION
  Report Type: 
  Country: None (occurrence: None)
  Receive Date: 20110818
  Receipt Date: 20110815
  Transmission Date: 20111222
  Serious: Yes (Other)
  Sender: FDA-Public Use
  Company Number: US-PFIZER INC-2011187665

PATIENT
  Sex: Female
  Weight: 88.435 kg

DRUGS (3)
  1. PREMPRO [Concomitant]
     Indication: HORMONE REPLACEMENT THERAPY
     Dosage: UNK
  2. EFFEXOR XR [Suspect]
     Indication: ANXIETY
     Dosage: 150 MG, 1X/DAY
     Dates: start: 20110601
  3. EFFEXOR XR [Suspect]
     Indication: DEPRESSION
     Dosage: 75 MG, 1X/DAY
     Route: 048
     Dates: start: 19950101, end: 20110601

REACTIONS (4)
  - DEPRESSION [None]
  - ANXIETY [None]
  - PARAESTHESIA [None]
  - PARAESTHESIA ORAL [None]
